FAERS Safety Report 23742340 (Version 1)
Quarter: 2024Q2

REPORT INFORMATION
  Report Type: Spontaneous
  Country: US (occurrence: None)
  Receive Date: 20240413
  Receipt Date: 20240413
  Transmission Date: 20240715
  Serious: Yes (Hospitalization)
  Sender: FDA-Public Use
  Company Number: None

PATIENT
  Sex: Female

DRUGS (2)
  1. LENALIDOMIDE [Suspect]
     Active Substance: LENALIDOMIDE
     Indication: Retroperitoneal cancer
     Dosage: FREQUENCY : DAILY;?
     Route: 048
     Dates: start: 202403
  2. BORTEZOMIB SDV [Concomitant]

REACTIONS (3)
  - Sepsis [None]
  - Neutropenia [None]
  - Pseudomonas infection [None]
